FAERS Safety Report 9901384 (Version 2)
Quarter: 2014Q2

REPORT INFORMATION
  Report Type: Spontaneous
  Country: DE (occurrence: DE)
  Receive Date: 20140217
  Receipt Date: 20140418
  Transmission Date: 20141212
  Serious: Yes (Other)
  Sender: FDA-Public Use
  Company Number: DE-PFIZER INC-2014044204

PATIENT
  Age: 41 Year
  Sex: Female

DRUGS (5)
  1. LYRICA [Suspect]
     Indication: PSYCHOGENIC PAIN DISORDER
     Dosage: 75 MG, 2X/DAY
     Route: 048
     Dates: start: 20111226, end: 20120927
  2. TAVOR [Suspect]
     Indication: PANIC ATTACK
     Dosage: 0.5 MG, 4X/DAY
     Route: 048
     Dates: start: 20111226, end: 20120927
  3. CITALOPRAM [Suspect]
     Indication: PANIC ATTACK
     Dosage: 20 MG, 1X/DAY
     Route: 048
     Dates: start: 20111226
  4. DOMINAL FORTE [Suspect]
     Indication: PANIC ATTACK
     Dosage: 80 MG, 2X/DAY
     Route: 048
     Dates: start: 20111226, end: 20120927
  5. AMITRIPTYLINE [Suspect]
     Indication: BORDERLINE PERSONALITY DISORDER
     Route: 048

REACTIONS (2)
  - Off label use [Unknown]
  - Gestational diabetes [Unknown]
